FAERS Safety Report 11393075 (Version 1)
Quarter: 2015Q3

REPORT INFORMATION
  Report Type: Spontaneous
  Country: US (occurrence: US)
  Receive Date: 20150818
  Receipt Date: 20150818
  Transmission Date: 20151125
  Serious: No
  Sender: FDA-Public Use
  Company Number: US-GLAXOSMITHKLINE-US2015115675

PATIENT
  Age: 72 Year
  Sex: Female

DRUGS (13)
  1. ALBUTEROL. [Concomitant]
     Active Substance: ALBUTEROL
  2. LEVOXYL [Concomitant]
     Active Substance: LEVOTHYROXINE SODIUM
  3. METOPROLOL [Concomitant]
     Active Substance: METOPROLOL
  4. ZESTRIL [Concomitant]
     Active Substance: LISINOPRIL
  5. OMEGA 3 OIL [Concomitant]
  6. LIPITOR [Concomitant]
     Active Substance: ATORVASTATIN CALCIUM
  7. ECOTRIN [Concomitant]
     Active Substance: ASPIRIN
  8. Q10 [Concomitant]
  9. SEROQUEL [Concomitant]
     Active Substance: QUETIAPINE FUMARATE
  10. BREO ELLIPTA [Suspect]
     Active Substance: FLUTICASONE FUROATE\VILANTEROL TRIFENATATE
     Indication: CHRONIC OBSTRUCTIVE PULMONARY DISEASE
     Dosage: 1 PUFF(S), 1D
     Route: 055
     Dates: start: 20150728, end: 20150806
  11. INDAPAMIDE. [Concomitant]
     Active Substance: INDAPAMIDE
  12. CELEXA [Concomitant]
     Active Substance: CITALOPRAM HYDROBROMIDE
  13. VITAMIN D [Concomitant]
     Active Substance: CHOLECALCIFEROL

REACTIONS (1)
  - Blood pressure increased [Not Recovered/Not Resolved]

NARRATIVE: CASE EVENT DATE: 20150730
